FAERS Safety Report 24301969 (Version 1)
Quarter: 2024Q3

REPORT INFORMATION
  Report Type: Spontaneous
  Country: US (occurrence: US)
  Receive Date: 20240910
  Receipt Date: 20240910
  Transmission Date: 20241017
  Serious: No
  Sender: MANKIND PHARMA
  Company Number: US-MankindUS-000221

PATIENT
  Age: 10 Month
  Sex: Male
  Weight: 8.07 kg

DRUGS (1)
  1. OFLOXACIN [Suspect]
     Active Substance: OFLOXACIN
     Indication: Conjunctivitis
     Dosage: PRESCRIBED 4X/DAY?ON 10-JUL-2024 (2 X) ?ON 11-JUL-2024 (4X)
     Dates: start: 20240710, end: 20240712

REACTIONS (2)
  - Peripheral swelling [Unknown]
  - Rash erythematous [Unknown]
